FAERS Safety Report 7797587-8 (Version None)
Quarter: 2011Q4

REPORT INFORMATION
  Report Type: 
  Country: None (occurrence: None)
  Receive Date: 20111003
  Receipt Date: 20110913
  Transmission Date: 20120403
  Serious: Yes (Hospitalization)
  Sender: FDA-Public Use
  Company Number: 2011PROUSA00645

PATIENT
  Age: 79 Year
  Sex: Male
  Weight: 75.3 kg

DRUGS (6)
  1. DEXILANT [Concomitant]
  2. PRILOSEC [Concomitant]
  3. PROVENGE [Suspect]
     Indication: PROSTATE CANCER METASTATIC
     Dosage: 250 ML, SINGLE, INTRAVENOUS
     Route: 042
     Dates: start: 20110822, end: 20110822
  4. PROVENGE [Suspect]
     Indication: PROSTATE CANCER METASTATIC
     Dosage: 250 ML, SINGLE, INTRAVENOUS
     Route: 042
     Dates: start: 20110808, end: 20110808
  5. LASIX [Concomitant]
  6. PROVENGE [Suspect]

REACTIONS (4)
  - CELLULITIS [None]
  - GRAM STAIN POSITIVE [None]
  - HAEMOGLOBIN DECREASED [None]
  - BACTERIAL TEST POSITIVE [None]
